FAERS Safety Report 10191872 (Version 2)
Quarter: 2014Q2

REPORT INFORMATION
  Report Type: Spontaneous
  Country: US (occurrence: US)
  Receive Date: 20140523
  Receipt Date: 20140523
  Transmission Date: 20141212
  Serious: Yes (Hospitalization, Other)
  Sender: FDA-Public Use
  Company Number: US-AMGEN-USASP2014034267

PATIENT
  Age: 63 Year
  Sex: Female
  Weight: 45.81 kg

DRUGS (5)
  1. PROLIA [Suspect]
     Indication: OSTEOPOROSIS POSTMENOPAUSAL
     Dosage: 60 MG/ML, UNK
     Route: 058
     Dates: start: 20130601
  2. ARIMIDEX [Concomitant]
     Dosage: 1 MG, QD
     Route: 048
  3. ASPIRIN [Concomitant]
     Dosage: 325 MG, QD
     Route: 048
  4. MACROBID                           /00024401/ [Concomitant]
     Dosage: 100 MG, BID
     Route: 048
  5. VITAMIN D                          /00107901/ [Concomitant]
     Dosage: 300 MG, QD
     Route: 048

REACTIONS (2)
  - Pneumonia [Recovered/Resolved]
  - Bone density abnormal [Unknown]
